FAERS Safety Report 14065942 (Version 2)
Quarter: 2017Q4

REPORT INFORMATION
  Report Type: Spontaneous
  Country: CA (occurrence: CA)
  Receive Date: 20171009
  Receipt Date: 20171012
  Transmission Date: 20180321
  Serious: Yes (Other)
  Sender: FDA-Public Use
  Company Number: CA-JNJFOC-20171002157

PATIENT

DRUGS (8)
  1. METHOTREXATE. [Suspect]
     Active Substance: METHOTREXATE
     Indication: CROHN^S DISEASE
     Route: 065
  2. INFLIXIMAB, RECOMBINANT [Suspect]
     Active Substance: INFLIXIMAB
     Indication: COLITIS ULCERATIVE
     Route: 042
  3. AZATHIOPRINE. [Suspect]
     Active Substance: AZATHIOPRINE
     Indication: CROHN^S DISEASE
     Route: 065
  4. METHOTREXATE. [Suspect]
     Active Substance: METHOTREXATE
     Indication: COLITIS ULCERATIVE
     Route: 065
  5. MERCAPTOPURINE. [Suspect]
     Active Substance: MERCAPTOPURINE
     Indication: CROHN^S DISEASE
     Route: 065
  6. INFLIXIMAB, RECOMBINANT [Suspect]
     Active Substance: INFLIXIMAB
     Indication: CROHN^S DISEASE
     Route: 042
  7. AZATHIOPRINE. [Suspect]
     Active Substance: AZATHIOPRINE
     Indication: COLITIS ULCERATIVE
     Route: 065
  8. MERCAPTOPURINE. [Suspect]
     Active Substance: MERCAPTOPURINE
     Indication: COLITIS ULCERATIVE
     Route: 065

REACTIONS (26)
  - Henoch-Schonlein purpura [Unknown]
  - Facial paralysis [Unknown]
  - Meningitis [Unknown]
  - Sepsis [Unknown]
  - Herpes zoster [Unknown]
  - Nausea [Unknown]
  - Thrombosis [Unknown]
  - Deep vein thrombosis [Unknown]
  - Clostridium difficile infection [Unknown]
  - Lower respiratory tract infection [Unknown]
  - Upper respiratory tract infection [Unknown]
  - Staphylococcal infection [Unknown]
  - Oral herpes [Unknown]
  - Infusion related reaction [Unknown]
  - Psoriasis [Unknown]
  - Influenza [Unknown]
  - Skin infection [Unknown]
  - Skin papilloma [Unknown]
  - Headache [Unknown]
  - Vaginal infection [Unknown]
  - Chillblains [Unknown]
  - Bacteraemia [Unknown]
  - Urinary tract infection [Unknown]
  - Therapeutic response decreased [Unknown]
  - Liver function test increased [Unknown]
  - Gastroenteritis [Unknown]
